FAERS Safety Report 5040906-6 (Version None)
Quarter: 2006Q2

REPORT INFORMATION
  Report Type: 
  Country: None (occurrence: None)
  Receive Date: 20060601
  Receipt Date: 20060301
  Transmission Date: 20061013
  Serious: No
  Sender: FDA-Public Use
  Company Number: 2006PV009542

PATIENT
  Sex: Male
  Weight: 81.6475 kg

DRUGS (3)
  1. BYETTA [Suspect]
     Indication: DRUG USE FOR UNKNOWN INDICATION
     Dosage: SC
     Route: 058
  2. GLUCOPHAGE [Concomitant]
  3. HUMALOG [Concomitant]

REACTIONS (2)
  - EARLY SATIETY [None]
  - WEIGHT DECREASED [None]
